FAERS Safety Report 23796579 (Version 1)
Quarter: 2024Q2

REPORT INFORMATION
  Report Type: Report from Study
  Country: GB (occurrence: GB)
  Receive Date: 20240430
  Receipt Date: 20240430
  Transmission Date: 20240716
  Serious: Yes (Hospitalization, Other)
  Sender: FDA-Public Use
  Company Number: GB-JNJFOC-20240104637

PATIENT
  Age: 63 Year
  Sex: Male
  Weight: 114.8 kg

DRUGS (13)
  1. TECLISTAMAB [Suspect]
     Active Substance: TECLISTAMAB
     Indication: Plasma cell myeloma
     Dosage: 1ST DOSE
     Route: 058
     Dates: start: 20221221
  2. TECLISTAMAB [Suspect]
     Active Substance: TECLISTAMAB
     Dosage: 2ND DOSE
     Route: 058
     Dates: start: 20221223
  3. TECLISTAMAB [Suspect]
     Active Substance: TECLISTAMAB
     Dosage: 3RD DOSE
     Route: 058
     Dates: start: 20221227
  4. TECLISTAMAB [Suspect]
     Active Substance: TECLISTAMAB
     Dosage: THEN WEEKLY TECLISTAMAB TILL JUNE 2023
     Route: 058
     Dates: end: 202306
  5. TECLISTAMAB [Suspect]
     Active Substance: TECLISTAMAB
     Dosage: FORTNIGHTLY DOSING
     Route: 058
  6. CLARITHROMYCIN [Concomitant]
     Active Substance: CLARITHROMYCIN
     Indication: Prophylaxis
     Route: 065
  7. MEROPENEM [Concomitant]
     Active Substance: MEROPENEM
     Indication: Prophylaxis
     Route: 065
  8. AMBISOME [Concomitant]
     Active Substance: AMPHOTERICIN B
     Indication: Prophylaxis
     Route: 065
  9. IMMUNE GLOBULIN NOS [Concomitant]
     Active Substance: IMMUNE GLOBULIN NOS
     Indication: Prophylaxis
     Route: 065
  10. ACYCLOVIR [Concomitant]
     Active Substance: ACYCLOVIR
     Indication: Prophylaxis
     Route: 065
  11. BUPRENORPHINE [Concomitant]
     Active Substance: BUPRENORPHINE
     Indication: Analgesic therapy
     Route: 065
  12. CHOLECALCIFEROL [Concomitant]
     Active Substance: CHOLECALCIFEROL
     Indication: Nutritional supplementation
     Dosage: 50,000 UNITS ONCE A WEEK FOR 5 WEEKS
     Route: 065
  13. LANSOPRAZOLE [Concomitant]
     Active Substance: LANSOPRAZOLE
     Indication: Gastrointestinal disorder therapy
     Route: 065

REACTIONS (5)
  - COVID-19 pneumonia [Unknown]
  - Lower respiratory tract infection [Unknown]
  - Parainfluenzae virus infection [Unknown]
  - Pulmonary embolism [Unknown]
  - Osteomyelitis [Unknown]

NARRATIVE: CASE EVENT DATE: 20231003
